FAERS Safety Report 7324494-7 (Version None)
Quarter: 2011Q1

REPORT INFORMATION
  Report Type: 
  Country: None (occurrence: None)
  Receive Date: 20110301
  Receipt Date: 20110216
  Transmission Date: 20110831
  Serious: Yes (Death, Life-Threatening, Hospitalization)
  Sender: FDA-Public Use
  Company Number: FR-PFIZER INC-FRWYE105130JUL07

PATIENT
  Age: 17 Year
  Sex: Male

DRUGS (23)
  1. TAZOCILLINE [Suspect]
     Indication: PYREXIA
  2. AMIKLIN [Suspect]
     Indication: BRONCHOPULMONARY ASPERGILLOSIS
     Dosage: 1 G, 1X/DAY
     Route: 042
     Dates: start: 20070520, end: 20070523
  3. VFEND [Suspect]
     Dosage: 300 MG, 2X/DAY
     Route: 042
     Dates: start: 20070516, end: 20070519
  4. AMSACRINE [Suspect]
     Indication: ACUTE MYELOID LEUKAEMIA
     Dosage: CONSOLIDATION CHEMOTHERAPY: 174 MG 1 TIME DAILY
     Route: 042
     Dates: start: 20070516, end: 20070518
  5. CANCIDAS [Suspect]
     Indication: BRONCHOPULMONARY ASPERGILLOSIS
     Dosage: 50 MG, 1X/DAY
     Route: 042
     Dates: start: 20070519, end: 20070523
  6. FORTUM [Suspect]
     Indication: BRONCHOPULMONARY ASPERGILLOSIS
     Dosage: 2 G, 2X/DAY
     Route: 042
     Dates: start: 20070520, end: 20070524
  7. TAZOCILLINE [Suspect]
     Indication: BRONCHOPULMONARY ASPERGILLOSIS
     Dosage: UNK
     Route: 042
     Dates: start: 20070430, end: 20070520
  8. PURINETHOL [Suspect]
     Indication: ACUTE MYELOID LEUKAEMIA
     Dosage: 50 MG, 3X/DAY
     Route: 048
     Dates: start: 20070423, end: 20070423
  9. FUNGIZONE [Suspect]
     Indication: BRONCHOPULMONARY ASPERGILLOSIS
     Dosage: UNK
     Route: 042
     Dates: start: 20070515, end: 20070516
  10. NOVANTRONE [Suspect]
     Indication: ACUTE MYELOID LEUKAEMIA
     Dosage: 20 MG, 1X/DAY
     Route: 042
     Dates: start: 20070425, end: 20070429
  11. FLAGYL ^PHARMACIA UPJOHN^ [Suspect]
     Indication: BRONCHOPULMONARY ASPERGILLOSIS
     Dosage: 500 KIU, 3X/DAY
     Route: 042
     Dates: start: 20070511, end: 20070524
  12. CERUBIDINE [Suspect]
     Indication: ACUTE MYELOID LEUKAEMIA
     Dosage: 104 MG, 1X/DAY
     Route: 042
     Dates: start: 20070424, end: 20070424
  13. HYDREA [Suspect]
     Indication: ACUTE MYELOID LEUKAEMIA
     Dosage: 3000 MG TOTAL DAILY
     Route: 048
     Dates: start: 20070424, end: 20070424
  14. CYTARABINE [Suspect]
     Dosage: CONSOLIDATION CHEMOTHERAPY: 5220 MG 2 TIMES PER DAY
     Route: 042
     Dates: start: 20070516, end: 20070518
  15. CYTARABINE [Suspect]
     Dosage: INDUCTION CHEMOTHERAPY: 340 MG DAILY
     Route: 042
     Dates: start: 20070425, end: 20070501
  16. CYTARABINE [Suspect]
     Dosage: 40 MG, UNK
     Route: 037
     Dates: start: 20070427, end: 20070427
  17. CYTARABINE [Suspect]
     Dosage: 40 MG, UNK
     Route: 037
     Dates: start: 20070509, end: 20070509
  18. TIENAM [Suspect]
     Indication: BRONCHOPULMONARY ASPERGILLOSIS
     Dosage: 500 MG, 4X/DAY
     Route: 042
     Dates: start: 20070518, end: 20070520
  19. HYDREA [Suspect]
     Dosage: 1500 MG TOTAL DAILY
     Route: 048
     Dates: start: 20070425, end: 20070425
  20. VANCOMYCIN [Suspect]
     Indication: BRONCHOPULMONARY ASPERGILLOSIS
     Dosage: UNK
     Route: 042
     Dates: start: 20070511, end: 20070523
  21. CYTARABINE [Suspect]
     Dosage: INDUCTION CHEMOTHERAPY: 348 MG DAILY
     Route: 042
     Dates: start: 20070424, end: 20070424
  22. METHOTREXATE [Suspect]
     Dosage: 15 MG
     Route: 037
     Dates: start: 20070427, end: 20070427
  23. METHOTREXATE [Suspect]
     Dosage: 15 MG
     Route: 037
     Dates: start: 20070509, end: 20070509

REACTIONS (17)
  - EYE MOVEMENT DISORDER [None]
  - PYREXIA [None]
  - COMA [None]
  - BLAST CELL COUNT INCREASED [None]
  - LYMPHADENITIS [None]
  - CONFUSIONAL STATE [None]
  - VENTRICULAR FIBRILLATION [None]
  - DECEREBRATION [None]
  - MYDRIASIS [None]
  - BRONCHOPULMONARY ASPERGILLOSIS [None]
  - CEREBELLAR SYNDROME [None]
  - PAROXYSMAL ARRHYTHMIA [None]
  - SINUS BRADYCARDIA [None]
  - TACHYPNOEA [None]
  - CONVULSION [None]
  - LIVER DISORDER [None]
  - CARDIO-RESPIRATORY ARREST [None]
